FAERS Safety Report 13877015 (Version 8)
Quarter: 2018Q1

REPORT INFORMATION
  Report Type: Spontaneous
  Country: US (occurrence: US)
  Receive Date: 20170817
  Receipt Date: 20180201
  Transmission Date: 20180508
  Serious: No
  Sender: FDA-Public Use
  Company Number: US-PFIZER INC-2017345146

PATIENT
  Age: 66 Year
  Sex: Female
  Weight: 58 kg

DRUGS (7)
  1. CARVEDILOL. [Concomitant]
     Active Substance: CARVEDILOL
     Indication: HYPERTENSION
     Dosage: 1 DF, DAILY
     Route: 048
     Dates: start: 20170518
  2. SUTENT [Suspect]
     Active Substance: SUNITINIB MALATE
     Dosage: 37.5 MG, CYCLIC (D 1-28 Q 42 DAYS)
     Route: 048
     Dates: start: 20170807
  3. ASA [Concomitant]
     Active Substance: ASPIRIN
     Indication: CARDIOVASCULAR DISORDER
     Dosage: 81 MG, DAILY
     Route: 048
     Dates: start: 20170518
  4. SUTENT [Suspect]
     Active Substance: SUNITINIB MALATE
     Dosage: 37.5 MG, CYCLIC (1 CAP QD 4 WK. ON 2 WK. OFF)
     Route: 048
     Dates: start: 20170807
  5. CYCLOBENZAPRINE. [Concomitant]
     Active Substance: CYCLOBENZAPRINE
     Indication: FIBROMYALGIA
     Dosage: 1 DF, AS NEEDED (ONE PO 98 DEGREE PRN)
     Route: 048
     Dates: start: 20170518
  6. SUTENT [Suspect]
     Active Substance: SUNITINIB MALATE
     Indication: METASTATIC RENAL CELL CARCINOMA
     Dosage: 37.5 MG, CYCLIC (D 1-28 Q 42 DAYS)
     Route: 048
     Dates: start: 20170807
  7. SUTENT [Suspect]
     Active Substance: SUNITINIB MALATE
     Dosage: 37.5 MG, CYCLIC, (DAYS 1-28 Q42 DAYS)
     Route: 048
     Dates: start: 20170807, end: 201801

REACTIONS (22)
  - Glomerular filtration rate decreased [Unknown]
  - Decreased appetite [Unknown]
  - Diarrhoea [Recovered/Resolved]
  - Feeling cold [Unknown]
  - Increased appetite [Unknown]
  - Cough [Not Recovered/Not Resolved]
  - Weight decreased [Unknown]
  - Platelet count decreased [Unknown]
  - Bone pain [Not Recovered/Not Resolved]
  - Drug dose omission [Unknown]
  - Fatigue [Unknown]
  - Poor quality sleep [Unknown]
  - Stomatitis [Recovering/Resolving]
  - Nausea [Not Recovered/Not Resolved]
  - Blood glucose increased [Unknown]
  - Vomiting [Unknown]
  - Blister [Recovered/Resolved]
  - Pulmonary pain [Not Recovered/Not Resolved]
  - Feeling abnormal [Unknown]
  - Eating disorder [Unknown]
  - Musculoskeletal pain [Not Recovered/Not Resolved]
  - White blood cell count decreased [Unknown]

NARRATIVE: CASE EVENT DATE: 2017
